FAERS Safety Report 9648948 (Version 2)
Quarter: 2013Q4

REPORT INFORMATION
  Report Type: Spontaneous
  Country: CO (occurrence: CO)
  Receive Date: 20131028
  Receipt Date: 20131030
  Transmission Date: 20140711
  Serious: Yes (Other)
  Sender: FDA-Public Use
  Company Number: CO-TEVA-440718USA

PATIENT
  Age: 76 Year
  Sex: Male
  Weight: 70 kg

DRUGS (5)
  1. RIBOMUSTIN [Suspect]
     Indication: LYMPHOMA
     Dosage: 5 TIMES EVERY 28 DAYS
     Dates: start: 20130913, end: 20131011
  2. EUTIROX [Concomitant]
     Indication: HYPOTHYROIDISM
     Dosage: 100  DAILY; UG
     Route: 048
  3. METOPROLOL [Concomitant]
     Indication: PRODUCT USED FOR UNKNOWN INDICATION
     Dosage: 25 MILLIGRAM DAILY;
     Route: 048
  4. ASPIRIN [Concomitant]
     Indication: ANTICOAGULANT THERAPY
     Dosage: 100 MILLIGRAM DAILY;
     Route: 048
  5. SECOTEX [Concomitant]
     Indication: PRODUCT USED FOR UNKNOWN INDICATION

REACTIONS (6)
  - General physical condition abnormal [Unknown]
  - Anxiety [Unknown]
  - Depressed mood [Unknown]
  - Drug dose omission [Unknown]
  - Fatigue [Unknown]
  - Decreased appetite [Unknown]
